FAERS Safety Report 4502623-8 (Version None)
Quarter: 2004Q4

REPORT INFORMATION
  Report Type: 
  Country: None (occurrence: None)
  Receive Date: 20041110
  Receipt Date: 20041025
  Transmission Date: 20050328
  Serious: No
  Sender: FDA-Public Use
  Company Number: A02200403066

PATIENT
  Age: 47 Year
  Sex: Male

DRUGS (7)
  1. ELOXATIN [Suspect]
     Indication: COLORECTAL CANCER
     Route: 042
  2. ELOXATIN [Suspect]
     Indication: METASTASES TO LIVER
     Route: 042
  3. CAMPTO             (IRINOTECAN HYDROCHLORIDE) - SOLUTION [Suspect]
     Indication: COLORECTAL CANCER
     Route: 042
     Dates: start: 20040201, end: 20040801
  4. CAMPTO             (IRINOTECAN HYDROCHLORIDE) - SOLUTION [Suspect]
     Indication: METASTASES TO LIVER
     Route: 042
     Dates: start: 20040201, end: 20040801
  5. FLUOROURACIL [Concomitant]
  6. TOMUDEX (RALTITREXED) [Concomitant]
  7. ERBITUX (CETUXIMAB) [Concomitant]

REACTIONS (15)
  - ASCITES [None]
  - BILIARY ANASTOMOSIS COMPLICATION [None]
  - HAEMATEMESIS [None]
  - HEPATIC FIBROSIS [None]
  - JAUNDICE [None]
  - LIVER SCAN ABNORMAL [None]
  - MELAENA [None]
  - METASTASES TO LIVER [None]
  - NEOPLASM RECURRENCE [None]
  - OEDEMA PERIPHERAL [None]
  - OESOPHAGEAL VARICES HAEMORRHAGE [None]
  - PELIOSIS HEPATIS [None]
  - PLEURAL EFFUSION [None]
  - PORTAL HYPERTENSION [None]
  - VENOOCCLUSIVE LIVER DISEASE [None]
